FAERS Safety Report 5303428-0 (Version None)
Quarter: 2007Q2

REPORT INFORMATION
  Report Type: 
  Country: None (occurrence: None)
  Receive Date: 20070420
  Receipt Date: 20070416
  Transmission Date: 20071010
  Serious: Yes (Other)
  Sender: FDA-Public Use
  Company Number: GB-BRISTOL-MYERS SQUIBB COMPANY-13749734

PATIENT
  Age: 82 Year
  Sex: Male

DRUGS (1)
  1. TRIAMCINOLONE ACETONIDE [Suspect]
     Route: 031

REACTIONS (5)
  - CATARACT SUBCAPSULAR [None]
  - INTRAOCULAR PRESSURE INCREASED [None]
  - LENS DISORDER [None]
  - LENTICULAR OPACITIES [None]
  - VISUAL ACUITY REDUCED [None]
